FAERS Safety Report 4381601-6 (Version None)
Quarter: 2004Q2

REPORT INFORMATION
  Report Type: 
  Country: None (occurrence: None)
  Receive Date: 20040615
  Receipt Date: 20040607
  Transmission Date: 20050107
  Serious: Yes (Hospitalization)
  Sender: FDA-Public Use
  Company Number: 280001L04TUR

PATIENT
  Age: 29 Year
  Sex: Female

DRUGS (4)
  1. METRODIN [Suspect]
     Indication: INFERTILITY FEMALE
     Dosage: 225 IU, 1 IN 1 DAYS,
  2. CHORIONIC GONADOTROPIN [Suspect]
     Dosage: 10000 IU, 1 IN 1 ONCE, INTRA-MUSCULAR
     Route: 030
  3. LEUPROLIDE ACETATE [Concomitant]
  4. PROGESTERONE [Concomitant]

REACTIONS (2)
  - DYSPHAGIA [None]
  - JUGULAR VEIN THROMBOSIS [None]
